FAERS Safety Report 5308909-1 (Version None)
Quarter: 2007Q2

REPORT INFORMATION
  Report Type: 
  Country: None (occurrence: None)
  Receive Date: 20070426
  Receipt Date: 20070417
  Transmission Date: 20071010
  Serious: Yes (Hospitalization, Disabling, Other)
  Sender: FDA-Public Use
  Company Number: US-PFIZER INC-2006065650

PATIENT
  Sex: Male

DRUGS (7)
  1. LIPITOR [Suspect]
     Route: 048
  2. ALTACE [Concomitant]
     Route: 065
  3. METOPROLOL SUCCINATE [Concomitant]
     Route: 065
  4. ACETYLSALICYLIC ACID SRT [Concomitant]
     Route: 065
  5. PLAVIX [Concomitant]
     Route: 065
  6. NITROGLYCERIN [Concomitant]
     Route: 060
  7. VICODIN [Concomitant]
     Route: 065

REACTIONS (26)
  - ANGINA PECTORIS [None]
  - ANHEDONIA [None]
  - BACK PAIN [None]
  - CARDIAC MURMUR [None]
  - CELLULITIS [None]
  - DEHYDRATION [None]
  - DIARRHOEA [None]
  - DISCOMFORT [None]
  - HAEMOPTYSIS [None]
  - HEPATOCELLULAR DAMAGE [None]
  - INCREASED VISCOSITY OF BRONCHIAL SECRETION [None]
  - INTERVERTEBRAL DISC DEGENERATION [None]
  - MITRAL VALVE INCOMPETENCE [None]
  - MUSCULAR WEAKNESS [None]
  - MUSCULOSKELETAL PAIN [None]
  - MYOSITIS [None]
  - NASAL CONGESTION [None]
  - NEUROSIS [None]
  - ORAL INTAKE REDUCED [None]
  - PAIN IN EXTREMITY [None]
  - PULMONARY VALVE INCOMPETENCE [None]
  - RASH MACULO-PAPULAR [None]
  - RENAL DISORDER [None]
  - RESPIRATORY TRACT INFECTION VIRAL [None]
  - RHABDOMYOLYSIS [None]
  - SHOCK [None]
